FAERS Safety Report 9732740 (Version 1)
Quarter: 2013Q4

REPORT INFORMATION
  Report Type: Spontaneous
  Country: US (occurrence: US)
  Receive Date: 20131204
  Receipt Date: 20131204
  Transmission Date: 20140711
  Serious: Yes (Other)
  Sender: FDA-Public Use
  Company Number: US-GLAXOSMITHKLINE-A1051935A

PATIENT
  Age: 66 Year
  Sex: Female

DRUGS (3)
  1. ADVAIR [Suspect]
     Indication: CHRONIC OBSTRUCTIVE PULMONARY DISEASE
     Dosage: 2PUFF TWICE PER DAY
     Route: 055
  2. TUDORZA PRESSAIR [Suspect]
     Indication: CHRONIC OBSTRUCTIVE PULMONARY DISEASE
     Dosage: 400MCG TWICE PER DAY
     Route: 055
     Dates: start: 201305, end: 20131016
  3. XOPENEX [Concomitant]

REACTIONS (3)
  - Candida infection [Recovered/Resolved]
  - Dry mouth [Not Recovered/Not Resolved]
  - Urine flow decreased [Recovered/Resolved]
